FAERS Safety Report 4897152-6 (Version None)
Quarter: 2006Q1

REPORT INFORMATION
  Report Type: 
  Country: None (occurrence: None)
  Receive Date: 20060131
  Receipt Date: 20051006
  Transmission Date: 20060701
  Serious: Yes (Death, Other)
  Sender: FDA-Public Use
  Company Number: US-MERCK-0510USA05611

PATIENT
  Age: 84 Year
  Sex: Female
  Weight: 68 kg

DRUGS (1)
  1. VIOXX [Suspect]
     Route: 048
     Dates: start: 20000508, end: 20010111

REACTIONS (7)
  - BLINDNESS [None]
  - CEREBROVASCULAR ACCIDENT [None]
  - CONVULSION [None]
  - HYPERTENSION [None]
  - RENAL FAILURE [None]
  - RENAL FAILURE ACUTE [None]
  - THROMBOSIS [None]
